FAERS Safety Report 6568411-6 (Version None)
Quarter: 2010Q1

REPORT INFORMATION
  Report Type: 
  Country: None (occurrence: None)
  Receive Date: 20100128
  Receipt Date: 20100119
  Transmission Date: 20100710
  Serious: Yes (Hospitalization)
  Sender: FDA-Public Use
  Company Number: 2010000259

PATIENT
  Age: 29 Year
  Sex: Female

DRUGS (11)
  1. ACTIQ [Suspect]
     Indication: PROCEDURAL PAIN
     Dosage: (100 MCG)
  2. ISOFLURANE [Concomitant]
  3. EPHEDRINE SUL CAP [Concomitant]
  4. MORPHINE [Concomitant]
  5. NITROUS OXIDE W/ OXYGEN [Concomitant]
  6. RANITIDINE [Concomitant]
  7. SODIUM CITRATE [Concomitant]
  8. SUXAMETHONIUM (SUXAMETHONIUM) [Concomitant]
  9. THIOPENTAL SODIUM [Concomitant]
  10. TAZOCIN (PIPERACILLIN SOIDUM, TAZOBACTAM SODIUM) [Concomitant]
  11. FLUCONAZOLE [Concomitant]

REACTIONS (6)
  - ACIDOSIS [None]
  - DRUG PRESCRIBING ERROR [None]
  - ENCEPHALOPATHY [None]
  - HYPOGLYCAEMIA [None]
  - HYPOTENSION [None]
  - OLIGURIA [None]
